FAERS Safety Report 7070852-8 (Version None)
Quarter: 2010Q4

REPORT INFORMATION
  Report Type: 
  Country: None (occurrence: None)
  Receive Date: 20101029
  Receipt Date: 20101015
  Transmission Date: 20110411
  Serious: Yes (Other)
  Sender: FDA-Public Use
  Company Number: PHHY2010US69564

PATIENT
  Sex: Female

DRUGS (1)
  1. RECLAST [Suspect]
     Dosage: 5 MG, ONCE PER YEAR
     Route: 042

REACTIONS (11)
  - ASTHENIA [None]
  - BLOOD PRESSURE INCREASED [None]
  - CHILLS [None]
  - DIZZINESS [None]
  - NAUSEA [None]
  - PAIN [None]
  - PALPITATIONS [None]
  - PARAESTHESIA [None]
  - PYREXIA [None]
  - SYNCOPE [None]
  - VOMITING [None]
